FAERS Safety Report 25641391 (Version 2)
Quarter: 2025Q3

REPORT INFORMATION
  Report Type: Spontaneous
  Country: US (occurrence: US)
  Receive Date: 20250804
  Receipt Date: 20250805
  Transmission Date: 20251020
  Serious: No
  Sender: PFIZER
  Company Number: US-PFIZER INC-PV202500093620

PATIENT
  Sex: Female

DRUGS (1)
  1. ETRASIMOD [Suspect]
     Active Substance: ETRASIMOD
     Dosage: 2 MG, DAILY
     Route: 048

REACTIONS (1)
  - Lymphocyte count decreased [Unknown]
